FAERS Safety Report 20088662 (Version 2)
Quarter: 2022Q4

REPORT INFORMATION
  Report Type: Spontaneous
  Country: US (occurrence: US)
  Receive Date: 20211119
  Receipt Date: 20221003
  Transmission Date: 20230113
  Serious: Yes (Other)
  Sender: FDA-Public Use
  Company Number: US-CIPLA LTD.-2021US07576

PATIENT

DRUGS (2)
  1. WARFARIN [Interacting]
     Active Substance: WARFARIN
     Indication: Atrial fibrillation
     Dosage: UNK
     Route: 065
  2. NEVIRAPINE [Interacting]
     Active Substance: NEVIRAPINE
     Indication: HIV infection
     Dosage: UNK
     Route: 065

REACTIONS (2)
  - Haemorrhagic transformation stroke [Unknown]
  - Drug interaction [Unknown]
